FAERS Safety Report 14783126 (Version 6)
Quarter: 2018Q4

REPORT INFORMATION
  Report Type: Spontaneous
  Country: FR (occurrence: FR)
  Receive Date: 20180420
  Receipt Date: 20181101
  Transmission Date: 20190204
  Serious: Yes (Death, Life-Threatening, Hospitalization, Disabling)
  Sender: FDA-Public Use
  Company Number: FR-CELGENEUS-FRA-20180404761

PATIENT
  Age: 85 Year
  Sex: Male
  Weight: 57 kg

DRUGS (10)
  1. MORPHINE [Concomitant]
     Active Substance: MORPHINE
     Indication: HAEMORRHOIDS
     Dosage: 10 MILLIGRAM
     Route: 041
     Dates: start: 20180326, end: 20180402
  2. ALLOPURINOL. [Concomitant]
     Active Substance: ALLOPURINOL
     Indication: PROPHYLAXIS
     Route: 065
     Dates: start: 20180115, end: 20180122
  3. RILMENIDINE [Concomitant]
     Active Substance: RILMENIDINE
     Indication: HYPERTENSION
     Dosage: 1 MILLIGRAM
     Route: 048
  4. AZACITIDINE. [Suspect]
     Active Substance: AZACITIDINE
     Indication: ACUTE MYELOID LEUKAEMIA
     Dosage: 75 MILLIGRAM/SQ. METER
     Route: 058
     Dates: start: 20180115, end: 20180121
  5. AZACITIDINE. [Suspect]
     Active Substance: AZACITIDINE
     Dosage: 18.75 MILLIGRAM/SQ. METER
     Route: 058
     Dates: start: 20180302, end: 20180308
  6. VENETOCLAX. [Concomitant]
     Active Substance: VENETOCLAX
     Indication: ACUTE MYELOID LEUKAEMIA
     Route: 065
  7. CIPROFLOXACINE [Concomitant]
     Active Substance: CIPROFLOXACIN
     Indication: RASH
     Dosage: 500 MILLIGRAM
     Route: 041
     Dates: start: 20180209, end: 20180218
  8. TAZOCILLINE [Concomitant]
     Active Substance: PIPERACILLIN SODIUM\TAZOBACTAM SODIUM
     Indication: INFECTION PROPHYLAXIS
     Route: 041
  9. ZELITREX [Concomitant]
     Active Substance: VALACYCLOVIR HYDROCHLORIDE
     Indication: BACTERIAL TRANSLOCATION
     Dosage: 500 MILLIGRAM
     Route: 048
     Dates: start: 20180206, end: 20180218
  10. PLAVIX [Concomitant]
     Active Substance: CLOPIDOGREL BISULFATE
     Indication: CEREBROVASCULAR ACCIDENT
     Dosage: 75 MILLIGRAM
     Route: 048
     Dates: start: 2003, end: 20180318

REACTIONS (1)
  - General physical health deterioration [Fatal]

NARRATIVE: CASE EVENT DATE: 20180219
